FAERS Safety Report 4948292-4 (Version None)
Quarter: 2006Q1

REPORT INFORMATION
  Report Type: 
  Country: None (occurrence: None)
  Receive Date: 20060314
  Receipt Date: 20060228
  Transmission Date: 20060701
  Serious: Yes (Hospitalization)
  Sender: FDA-Public Use
  Company Number: CLOF-10188

PATIENT
  Age: 11 Year
  Sex: Female

DRUGS (19)
  1. CLOFARABINE [Suspect]
     Indication: ACUTE LYMPHOCYTIC LEUKAEMIA
     Dosage: 56.16 MG QD X 5 IV
     Route: 042
     Dates: start: 20060130, end: 20060203
  2. CLOFARABINE [Suspect]
     Indication: ACUTE LYMPHOCYTIC LEUKAEMIA
     Dosage: 56.16 MG QD X 5
     Dates: start: 20060220, end: 20060224
  3. TAZOCILLINE [Concomitant]
  4. FABTURTEC [Concomitant]
  5. BACTRIM [Concomitant]
  6. ZOPHREN [Concomitant]
  7. MOPRAL [Concomitant]
  8. FORLAX [Concomitant]
  9. LACTEOL [Concomitant]
  10. HYPNOVEL [Concomitant]
  11. AMBISOME [Concomitant]
  12. ACETAMINOPHEN [Concomitant]
  13. CYAMEMAZINE [Concomitant]
  14. CIPROFLOXACIN [Concomitant]
  15. CEFTAZIDIME [Concomitant]
  16. RANITIDINE [Concomitant]
  17. LACTOBACILLUS [Concomitant]
  18. ALBUMINAR [Concomitant]
  19. ONDANSETRON [Concomitant]

REACTIONS (8)
  - CAPILLARY LEAK SYNDROME [None]
  - CONDITION AGGRAVATED [None]
  - FEBRILE NEUTROPENIA [None]
  - PANCYTOPENIA [None]
  - RASH [None]
  - RENAL FAILURE ACUTE [None]
  - TRANSAMINASES INCREASED [None]
  - VASCULITIS [None]
